FAERS Safety Report 12243711 (Version 1)
Quarter: 2016Q2

REPORT INFORMATION
  Report Type: Spontaneous
  Country: US (occurrence: US)
  Receive Date: 20160406
  Receipt Date: 20160406
  Transmission Date: 20160815
  Serious: Yes (Hospitalization)
  Sender: FDA-Public Use
  Company Number: US-ACTELION PHARMACEUTICALS US, INC.-A-NJ2016-134051

PATIENT
  Age: 33 Year
  Sex: Male

DRUGS (1)
  1. VENTAVIS [Suspect]
     Active Substance: ILOPROST
     Indication: PULMONARY ARTERIAL HYPERTENSION
     Dosage: 5 MCG, 3-4X/DAY
     Route: 055
     Dates: start: 20141106

REACTIONS (2)
  - Acute respiratory failure [Unknown]
  - Hypoxia [Unknown]

NARRATIVE: CASE EVENT DATE: 20160328
